FAERS Safety Report 25211546 (Version 1)
Quarter: 2025Q2

REPORT INFORMATION
  Report Type: Report from Study
  Country: US (occurrence: US)
  Receive Date: 20250418
  Receipt Date: 20250418
  Transmission Date: 20250717
  Serious: Yes (Other)
  Sender: ABBVIE
  Company Number: US-ABBVIE-6227924

PATIENT
  Age: 67 Year
  Sex: Female

DRUGS (1)
  1. HUMIRA [Suspect]
     Active Substance: ADALIMUMAB
     Indication: Crohn^s disease
     Route: 058
     Dates: start: 20141201

REACTIONS (10)
  - Foot deformity [Unknown]
  - Sinusitis [Recovering/Resolving]
  - Haemorrhoids [Not Recovered/Not Resolved]
  - Arthritis [Not Recovered/Not Resolved]
  - Frequent bowel movements [Not Recovered/Not Resolved]
  - Bronchitis [Recovering/Resolving]
  - Hyperhidrosis [Unknown]
  - Rectal spasm [Unknown]
  - Sitting disability [Unknown]
  - Productive cough [Recovering/Resolving]

NARRATIVE: CASE EVENT DATE: 20240101
